FAERS Safety Report 23780211 (Version 1)
Quarter: 2024Q2

REPORT INFORMATION
  Report Type: Spontaneous
  Country: CN (occurrence: CN)
  Receive Date: 20240424
  Receipt Date: 20240424
  Transmission Date: 20240716
  Serious: Yes (Other)
  Sender: FDA-Public Use
  Company Number: CN-STRIDES ARCOLAB LIMITED-2024SP004774

PATIENT
  Age: 3 Decade
  Sex: Female

DRUGS (4)
  1. PREDNISOLONE [Suspect]
     Active Substance: PREDNISOLONE
     Indication: Encephalitis autoimmune
     Dosage: UNK (STARTING WITH 1MG/KG BODY WEIGHT DURING THE FIRST 2 WEEKS AND TAPERING TO ZERO)
     Route: 065
  2. MYCOPHENOLATE MOFETIL [Suspect]
     Active Substance: MYCOPHENOLATE MOFETIL
     Indication: Encephalitis autoimmune
     Dosage: 1 GRAM, QD (1G/DAY)
     Route: 065
  3. METHYLPREDNISOLONE SODIUM SUCCINATE [Suspect]
     Active Substance: METHYLPREDNISOLONE SODIUM SUCCINATE
     Indication: Encephalitis autoimmune
     Dosage: UNK (EQUIVALENT TO 1000?MG/DAY METHYLPREDNISOLONE )
     Route: 042
  4. HUMAN IMMUNOGLOBULIN G [Suspect]
     Active Substance: HUMAN IMMUNOGLOBULIN G
     Indication: Encephalitis autoimmune
     Dosage: 0.4 MILLIGRAM/KILOGRAM, QD
     Route: 042

REACTIONS (3)
  - Therapy non-responder [Unknown]
  - Condition aggravated [Unknown]
  - Off label use [Unknown]
